FAERS Safety Report 21895540 (Version 2)
Quarter: 2023Q1

REPORT INFORMATION
  Report Type: Report from Study
  Country: NL (occurrence: None)
  Receive Date: 20230123
  Receipt Date: 20230203
  Transmission Date: 20230417
  Serious: Yes (Hospitalization)
  Sender: FDA-Public Use
  Company Number: NL-Merck Healthcare KGaA-9378933

PATIENT
  Age: 54 Year
  Sex: Female

DRUGS (1)
  1. REBIF [Suspect]
     Active Substance: INTERFERON BETA-1A
     Indication: Relapsing-remitting multiple sclerosis
     Route: 058

REACTIONS (4)
  - Pancreatitis [Unknown]
  - Cholecystitis [Unknown]
  - Product administration interrupted [Unknown]
  - Drug dose titration not performed [Unknown]
